FAERS Safety Report 19933640 (Version 2)
Quarter: 2021Q4

REPORT INFORMATION
  Report Type: Spontaneous
  Country: US (occurrence: US)
  Receive Date: 20211008
  Receipt Date: 20211123
  Transmission Date: 20220303
  Serious: No
  Sender: FDA-Public Use
  Company Number: US-009507513-2109USA007436

PATIENT
  Sex: Female

DRUGS (2)
  1. CUBICIN [Suspect]
     Active Substance: DAPTOMYCIN
     Indication: Pyelonephritis
  2. MEROPENEM [Concomitant]
     Active Substance: MEROPENEM
     Indication: Pyelonephritis

REACTIONS (1)
  - Product use in unapproved indication [Unknown]
